FAERS Safety Report 4545335-7 (Version None)
Quarter: 2004Q4

REPORT INFORMATION
  Report Type: 
  Country: None (occurrence: None)
  Receive Date: 20041222
  Receipt Date: 20040924
  Transmission Date: 20050328
  Serious: Yes (Hospitalization)
  Sender: FDA-Public Use
  Company Number: US97085254A

PATIENT
  Age: 60 Year
  Sex: Female
  Weight: 102 kg

DRUGS (10)
  1. HUMALOG [Suspect]
     Dosage: 84 U DAY
  2. HUMULIN 70/30 [Suspect]
     Indication: DIABETES MELLITUS
     Dosage: 35 U/ 1 DAY
  3. ESTRADIOL [Concomitant]
  4. IRON [Concomitant]
  5. ZESTORETIC [Concomitant]
  6. NORVASC (AMLODIPIN) [Concomitant]
  7. LIPITOR [Concomitant]
  8. IMDUR [Concomitant]
  9. POTASSIUM [Concomitant]
  10. ZESTRIL [Concomitant]

REACTIONS (5)
  - ANGINA PECTORIS [None]
  - BLOOD GLUCOSE DECREASED [None]
  - BLOOD GLUCOSE INCREASED [None]
  - CARDIAC DISORDER [None]
  - GASTROOESOPHAGEAL REFLUX DISEASE [None]
